FAERS Safety Report 10939242 (Version 2)
Quarter: 2015Q2

REPORT INFORMATION
  Report Type: Spontaneous
  Country: US (occurrence: US)
  Receive Date: 20150322
  Receipt Date: 20150525
  Transmission Date: 20150821
  Serious: No
  Sender: FDA-Public Use
  Company Number: US-JNJFOC-20140101282

PATIENT
  Age: 74 Year
  Sex: Female
  Weight: 65.77 kg

DRUGS (9)
  1. METFORMIN [Concomitant]
     Active Substance: METFORMIN HYDROCHLORIDE
     Indication: DIABETES MELLITUS
     Route: 048
  2. LISINOPRIL. [Concomitant]
     Active Substance: LISINOPRIL
     Indication: BLOOD PRESSURE
     Route: 048
  3. LETROZOLE. [Concomitant]
     Active Substance: LETROZOLE
     Indication: NEOPLASM PROPHYLAXIS
     Route: 048
  4. LOPID [Concomitant]
     Active Substance: GEMFIBROZIL
     Indication: DIABETES MELLITUS
     Route: 048
  5. TIMOLOL [Concomitant]
     Active Substance: TIMOLOL
     Indication: GLAUCOMA
     Route: 048
  6. LISINOPRIL. [Concomitant]
     Active Substance: LISINOPRIL
     Indication: RENAL IMPAIRMENT
     Route: 048
  7. LEVAQUIN [Suspect]
     Active Substance: LEVOFLOXACIN
     Indication: PRODUCT USED FOR UNKNOWN INDICATION
     Route: 065
     Dates: start: 2006
  8. PROTONIX [Concomitant]
     Active Substance: PANTOPRAZOLE SODIUM
     Indication: DIVERTICULITIS
     Route: 048
  9. NUCYNTA [Suspect]
     Active Substance: TAPENTADOL HYDROCHLORIDE
     Indication: MUSCULOSKELETAL PAIN
     Route: 048
     Dates: start: 20131202, end: 20131202

REACTIONS (3)
  - Dizziness [Recovered/Resolved]
  - Nausea [Recovered/Resolved]
  - Disorientation [Recovered/Resolved]

NARRATIVE: CASE EVENT DATE: 20131202
